FAERS Safety Report 22061461 (Version 1)
Quarter: 2023Q1

REPORT INFORMATION
  Report Type: Spontaneous
  Country: CA (occurrence: CA)
  Receive Date: 20230304
  Receipt Date: 20230304
  Transmission Date: 20230418
  Serious: Yes (Other)
  Sender: FDA-Public Use
  Company Number: CA-ABBVIE-4132429

PATIENT
  Sex: Female

DRUGS (1)
  1. HUMIRA [Suspect]
     Active Substance: ADALIMUMAB
     Indication: Rheumatoid arthritis
     Route: 058

REACTIONS (6)
  - Rheumatoid arthritis [Unknown]
  - Product dose omission issue [Unknown]
  - Headache [Unknown]
  - Urinary tract infection [Unknown]
  - Peripheral swelling [Unknown]
  - Nausea [Unknown]
